FAERS Safety Report 9324824 (Version 2)
Quarter: 2013Q2

REPORT INFORMATION
  Report Type: Spontaneous
  Country: US (occurrence: US)
  Receive Date: 20130603
  Receipt Date: 20130627
  Transmission Date: 20140414
  Serious: Yes (Hospitalization)
  Sender: FDA-Public Use
  Company Number: US-B.I. PHARMACEUTICALS,INC./RIDGEFIELD-2013-BI-15443BP

PATIENT
  Age: 75 Year
  Sex: Male
  Weight: 70.76 kg

DRUGS (17)
  1. PRADAXA [Suspect]
     Indication: ANTICOAGULANT THERAPY
     Dosage: 150 MG
     Dates: start: 20120216, end: 20120404
  2. PRADAXA [Suspect]
     Indication: ATRIAL FIBRILLATION
  3. ADVAIR DISKUS [Concomitant]
     Route: 055
  4. ASPIRIN [Concomitant]
     Dosage: 81 MG
  5. B COMPLEX AND [FOLATE] [Concomitant]
  6. [B COMPLEX] AND FOLATE [Concomitant]
  7. FERROUS SULFATE [Concomitant]
     Dosage: 325 MG
  8. LANTUS [Concomitant]
  9. REGULAR INSULIN [Concomitant]
  10. LASIX [Concomitant]
     Dosage: 160 MG
  11. LEVOTHYROXINE [Concomitant]
     Dosage: 25 MCG
  12. LISINOPRIL [Concomitant]
     Dosage: 20 MG
  13. METOPROLOL [Concomitant]
     Dosage: 50 MG
  14. NEXIUM [Concomitant]
     Dosage: 40 MG
  15. SPIRIVA [Concomitant]
     Dosage: 18 MCG
     Route: 055
  16. ALDACTONE [Concomitant]
     Dosage: 25 MG
  17. VIATMIN D [Concomitant]
     Dosage: 1000 U

REACTIONS (7)
  - Lower gastrointestinal haemorrhage [Recovered/Resolved]
  - Haemorrhagic anaemia [Unknown]
  - Coagulopathy [Unknown]
  - Renal failure acute [Unknown]
  - Hyperkalaemia [Unknown]
  - Weight decreased [Unknown]
  - Diarrhoea [Unknown]
